FAERS Safety Report 4327653-0 (Version None)
Quarter: 2004Q1

REPORT INFORMATION
  Report Type: 
  Country: None (occurrence: None)
  Receive Date: 20040325
  Receipt Date: 20040311
  Transmission Date: 20041129
  Serious: Yes (Disabling, Other)
  Sender: FDA-Public Use
  Company Number: 2004016995

PATIENT
  Age: 36 Year
  Sex: Male

DRUGS (4)
  1. AZITHROMYCIN [Suspect]
     Indication: BRONCHITIS
     Dosage: 250 MG, ORAL
     Route: 048
  2. SALBUTAMOL (SALBUTAMOL) [Concomitant]
  3. FLUTICASONE PROPIONATE [Concomitant]
  4. SALMETEROL XINAFOATE (SALMETEROL XINAFOATE) [Concomitant]

REACTIONS (4)
  - DEAFNESS UNILATERAL [None]
  - LABYRINTHINE FISTULA [None]
  - TINNITUS [None]
  - VERTIGO [None]
